FAERS Safety Report 24779136 (Version 1)
Quarter: 2024Q4

REPORT INFORMATION
  Report Type: Spontaneous
  Country: US (occurrence: None)
  Receive Date: 20241226
  Receipt Date: 20241226
  Transmission Date: 20250114
  Serious: Yes (Hospitalization)
  Sender: Public
  Company Number: None

PATIENT
  Age: 78 Year
  Sex: Male
  Weight: 107 kg

DRUGS (1)
  1. AMLODIPINE BESYLATE [Suspect]
     Active Substance: AMLODIPINE BESYLATE
     Indication: Hypertension
     Dosage: FREQUENCY : DAILY;?
     Route: 048

REACTIONS (12)
  - Oedema peripheral [None]
  - Oedema peripheral [None]
  - Dyspnoea [None]
  - Fatigue [None]
  - Asthenia [None]
  - Dizziness [None]
  - Dizziness postural [None]
  - Skin warm [None]
  - Oedema [None]
  - Pulse abnormal [None]
  - Peripheral artery stenosis [None]
  - Therapy cessation [None]

NARRATIVE: CASE EVENT DATE: 20241015
